FAERS Safety Report 18315693 (Version 1)
Quarter: 2020Q3

REPORT INFORMATION
  Report Type: Report from Study
  Country: MY (occurrence: MY)
  Receive Date: 20200926
  Receipt Date: 20200926
  Transmission Date: 20201103
  Serious: Yes (Other)
  Sender: FDA-Public Use
  Company Number: PHHY2019MY149106

PATIENT
  Age: 16 Year
  Sex: Female

DRUGS (1)
  1. EXJADE [Suspect]
     Active Substance: DEFERASIROX
     Indication: THALASSAEMIA
     Dosage: 1080 MG, TID
     Route: 048
     Dates: start: 2015

REACTIONS (6)
  - Serum ferritin increased [Unknown]
  - Product size issue [Unknown]
  - Product use complaint [Unknown]
  - Inappropriate schedule of product administration [Unknown]
  - Feeling abnormal [Unknown]
  - Memory impairment [Unknown]

NARRATIVE: CASE EVENT DATE: 20190312
